FAERS Safety Report 18320023 (Version 1)
Quarter: 2020Q3

REPORT INFORMATION
  Report Type: Spontaneous
  Country: FR (occurrence: FR)
  Receive Date: 20200928
  Receipt Date: 20200928
  Transmission Date: 20201103
  Serious: Yes (Hospitalization)
  Sender: FDA-Public Use
  Company Number: FR-GLAXOSMITHKLINE-FR2020191743

PATIENT
  Age: 56 Year
  Sex: Female
  Weight: 80 kg

DRUGS (3)
  1. AUGMENTIN [Suspect]
     Active Substance: AMOXICILLIN\CLAVULANATE POTASSIUM
     Indication: KLEBSIELLA INFECTION
     Dosage: 3 G, QD
     Route: 042
     Dates: start: 20200825, end: 20200904
  2. ACICLOVIR [Suspect]
     Active Substance: ACYCLOVIR
     Indication: ORAL HERPES
     Dosage: 5 MG/KG, TID
     Route: 042
     Dates: start: 20200828, end: 20200906
  3. TIENAM [Suspect]
     Active Substance: CILASTATIN SODIUM\IMIPENEM
     Indication: KLEBSIELLA INFECTION
     Dosage: 500 MG, QID
     Route: 042
     Dates: start: 20200822, end: 20200825

REACTIONS (2)
  - Rash maculo-papular [Recovered/Resolved]
  - Eosinophilia [Recovered/Resolved]

NARRATIVE: CASE EVENT DATE: 20200904
